FAERS Safety Report 7542933-3 (Version None)
Quarter: 2011Q2

REPORT INFORMATION
  Report Type: 
  Country: None (occurrence: None)
  Receive Date: 20110613
  Receipt Date: 20110531
  Transmission Date: 20111010
  Serious: Yes (Disabling, Congenital Anomaly, Other)
  Sender: FDA-Public Use
  Company Number: PHHY2011CA40876

PATIENT
  Sex: Female

DRUGS (7)
  1. CLOZAPINE [Suspect]
     Dosage: 100 MG Q AM, 50 LUNCH, 50 DINNER AND  450 HS
     Route: 048
     Dates: start: 20110427, end: 20110530
  2. FERROUS SULFATE TAB [Concomitant]
  3. CLOZAPINE [Suspect]
     Indication: SCHIZOAFFECTIVE DISORDER
     Dosage: UNK
     Dates: start: 20060207
  4. LAMOTRIGINE [Concomitant]
     Dosage: 100 MG, BID
  5. CITALOPRAM [Concomitant]
     Dosage: 10 MG, DAILY
  6. CHLORAL HYDRATE [Concomitant]
     Dosage: 250 BID PRN
  7. RISPERDAL [Concomitant]
     Dosage: 1.75 MG, QHS

REACTIONS (2)
  - HIP FRACTURE [None]
  - FALL [None]
